FAERS Safety Report 8353533-X (Version None)
Quarter: 2012Q2

REPORT INFORMATION
  Report Type: 
  Country: None (occurrence: None)
  Receive Date: 20120511
  Receipt Date: 20110513
  Transmission Date: 20120825
  Serious: No
  Sender: FDA-Public Use
  Company Number: US-GLAXOSMITHKLINE-A0928076A

PATIENT
  Age: 68 Year
  Sex: Female
  Weight: 74.5 kg

DRUGS (10)
  1. LEVOXYL [Concomitant]
  2. HERCEPTIN [Concomitant]
  3. TYLENOL (CAPLET) [Concomitant]
  4. DEXAMETHASONE [Concomitant]
  5. TYKERB [Suspect]
     Indication: BREAST CANCER
     Dosage: 1000MG PER DAY
     Route: 048
     Dates: start: 20110505
  6. NEURONTIN [Concomitant]
  7. POTASSIUM CHLORIDE [Concomitant]
  8. VITAMIN D [Concomitant]
  9. LASIX [Concomitant]
  10. ZOCOR [Concomitant]

REACTIONS (5)
  - DECREASED APPETITE [None]
  - DIZZINESS [None]
  - DIARRHOEA [None]
  - WEIGHT DECREASED [None]
  - DYSGEUSIA [None]
